FAERS Safety Report 14102689 (Version 1)
Quarter: 2017Q4

REPORT INFORMATION
  Report Type: Report from Study
  Country: CA (occurrence: CA)
  Receive Date: 20171018
  Receipt Date: 20171018
  Transmission Date: 20180321
  Serious: Yes (Other)
  Sender: FDA-Public Use
  Company Number: CA-JNJFOC-20171015117

PATIENT
  Age: 11 Year
  Sex: Female
  Weight: 35.7 kg

DRUGS (1)
  1. REMICADE [Suspect]
     Active Substance: INFLIXIMAB
     Indication: CROHN^S DISEASE
     Route: 042
     Dates: start: 20150219

REACTIONS (3)
  - Upper respiratory tract infection [Unknown]
  - Otitis media [Unknown]
  - Myringitis [Unknown]

NARRATIVE: CASE EVENT DATE: 20171012
